FAERS Safety Report 7432793-3 (Version None)
Quarter: 2011Q2

REPORT INFORMATION
  Report Type: 
  Country: None (occurrence: None)
  Receive Date: 20110422
  Receipt Date: 20110418
  Transmission Date: 20111010
  Serious: Yes (Life-Threatening, Hospitalization, Disabling)
  Sender: FDA-Public Use
  Company Number: Z0009008A

PATIENT
  Sex: Female
  Weight: 78 kg

DRUGS (2)
  1. CHLORAMBUCIL [Suspect]
     Route: 048
     Dates: start: 20090720
  2. OFATUMUMAB [Suspect]
     Route: 042
     Dates: start: 20090720

REACTIONS (1)
  - BRAIN NEOPLASM [None]
